FAERS Safety Report 24151696 (Version 1)
Quarter: 2024Q3

REPORT INFORMATION
  Report Type: Spontaneous
  Country: US (occurrence: US)
  Receive Date: 20240730
  Receipt Date: 20240730
  Transmission Date: 20241017
  Serious: No
  Sender: MYLAN
  Company Number: US-MYLANLABS-2024M1068265

PATIENT
  Sex: Female

DRUGS (2)
  1. TYRVAYA [Suspect]
     Active Substance: VARENICLINE TARTRATE
     Indication: Dry eye
     Dosage: 0.03 MILLIGRAM, BID (TWICE A DAY, ONE SPRAY IN EACH NOSTRIL)
     Route: 045
  2. MUCOMYST [Concomitant]
     Active Substance: ACETYLCYSTEINE
     Indication: Keratitis
     Dosage: UNK
     Route: 065

REACTIONS (2)
  - Erythema [Unknown]
  - Erythema of eyelid [Unknown]
